FAERS Safety Report 5896722-6 (Version None)
Quarter: 2008Q3

REPORT INFORMATION
  Report Type: 
  Country: None (occurrence: None)
  Receive Date: 20080924
  Receipt Date: 20071207
  Transmission Date: 20090109
  Serious: No
  Sender: FDA-Public Use
  Company Number: US-ASTRAZENECA-2007UW28024

PATIENT
  Age: 45 Year
  Sex: Female
  Weight: 58.1 kg

DRUGS (7)
  1. SEROQUEL [Suspect]
     Indication: DEPRESSION
  2. SEROQUEL [Suspect]
     Indication: AGITATION
  3. SEROQUEL [Suspect]
     Indication: SUICIDAL IDEATION
  4. SEROQUEL [Suspect]
     Dates: start: 20060901
  5. SEROQUEL [Suspect]
     Dates: start: 20060901
  6. SEROQUEL [Suspect]
     Dates: start: 20060901
  7. ALEVE [Concomitant]

REACTIONS (3)
  - DYSPHAGIA [None]
  - FEELING ABNORMAL [None]
  - FEELING OF RELAXATION [None]
